FAERS Safety Report 6712472-8 (Version None)
Quarter: 2010Q2

REPORT INFORMATION
  Report Type: 
  Country: None (occurrence: None)
  Receive Date: 20100506
  Receipt Date: 20100427
  Transmission Date: 20101027
  Serious: No
  Sender: FDA-Public Use
  Company Number: US-BIOGENIDEC-2010BI013954

PATIENT
  Age: 31 Year
  Sex: Female

DRUGS (2)
  1. AVONEX [Suspect]
     Indication: MULTIPLE SCLEROSIS
     Route: 030
     Dates: start: 20021231, end: 20031202
  2. AVONEX [Suspect]
     Route: 030
     Dates: start: 20081101

REACTIONS (4)
  - DYSKINESIA [None]
  - INJECTION SITE INDURATION [None]
  - INJECTION SITE PAIN [None]
  - PAIN IN EXTREMITY [None]
